FAERS Safety Report 7744126-3 (Version None)
Quarter: 2011Q3

REPORT INFORMATION
  Report Type: 
  Country: None (occurrence: None)
  Receive Date: 20110912
  Receipt Date: 20110901
  Transmission Date: 20111222
  Serious: Yes (Hospitalization)
  Sender: FDA-Public Use
  Company Number: GB-JNJFOC-20101206981

PATIENT
  Age: 37 Year
  Sex: Male

DRUGS (4)
  1. ACETAMINOPHEN [Suspect]
     Indication: PRODUCT USED FOR UNKNOWN INDICATION
     Dosage: 30 TABLETS
     Route: 048
     Dates: start: 20101201
  2. CLOZAPINE [Suspect]
     Indication: SCHIZOPHRENIA
     Route: 048
     Dates: start: 19950307
  3. CLOZAPINE [Suspect]
     Route: 048
     Dates: start: 20030115, end: 20101201
  4. ACETAMINOPHEN [Suspect]
     Route: 048

REACTIONS (3)
  - ACUTE HEPATIC FAILURE [None]
  - OVERDOSE [None]
  - BLOOD BILIRUBIN INCREASED [None]
